FAERS Safety Report 7163681-8 (Version None)
Quarter: 2010Q4

REPORT INFORMATION
  Report Type: 
  Country: None (occurrence: None)
  Receive Date: 20101215
  Receipt Date: 20100527
  Transmission Date: 20110411
  Serious: Yes (Other)
  Sender: FDA-Public Use
  Company Number: FI-PFIZER INC-2010046143

PATIENT
  Age: 40 Year
  Sex: Female

DRUGS (8)
  1. LYRICA [Suspect]
     Indication: NEURALGIA
     Dosage: 75 MG, 2X/DAY
     Route: 048
     Dates: start: 20091209, end: 20091216
  2. LYRICA [Suspect]
     Dosage: 150 MG, 2X/DAY
     Route: 048
     Dates: start: 20091217, end: 20091220
  3. LYRICA [Suspect]
     Dosage: 150 MG, 1X/DAY
     Route: 048
     Dates: start: 20091221, end: 20100119
  4. LYRICA [Suspect]
     Dosage: 150 MG, 2X/DAY
     Route: 048
     Dates: start: 20100120, end: 20100121
  5. LYRICA [Suspect]
     Dosage: 75MG-150MG X 1
     Route: 048
     Dates: start: 20100122, end: 20100310
  6. NEXIUM [Concomitant]
     Dosage: 20 MG, 1X/DAY
  7. DEXPANTHENOL [Concomitant]
     Dosage: UNK
  8. BURANA [Concomitant]
     Dosage: 600 MG, AS NEEDED

REACTIONS (2)
  - CYANOSIS [None]
  - PERIPHERAL COLDNESS [None]
